FAERS Safety Report 8772977 (Version 5)
Quarter: 2013Q1

REPORT INFORMATION
  Report Type: Spontaneous
  Country: US (occurrence: US)
  Receive Date: 20120907
  Receipt Date: 20130322
  Transmission Date: 20140127
  Serious: Yes (Hospitalization, Disabling, Other)
  Sender: FDA-Public Use
  Company Number: US-009507513-1208USA011461

PATIENT
  Sex: Female
  Weight: 68.48 kg

DRUGS (8)
  1. FOSAMAX [Suspect]
     Indication: OSTEOPOROSIS
     Dosage: 70 MG, UNK
     Route: 048
     Dates: start: 20040728, end: 20061229
  2. FOSAMAX [Suspect]
     Indication: OSTEOPOROSIS PROPHYLAXIS
  3. FOSAMAX PLUS D [Suspect]
     Indication: OSTEOPOROSIS
     Dosage: 70 MG/2800 UNITS QW
     Route: 048
     Dates: start: 20070209, end: 200810
  4. FOSAMAX PLUS D [Suspect]
     Indication: OSTEOPOROSIS PROPHYLAXIS
  5. FOSAMAX [Suspect]
     Indication: OSTEOPOROSIS
     Dosage: 70 MG, UNK
     Route: 048
     Dates: start: 20081229, end: 201009
  6. FOSAMAX [Suspect]
     Indication: OSTEOPOROSIS PROPHYLAXIS
  7. AMLODIPINE [Concomitant]
     Indication: HYPERTENSION
     Dosage: UNK
     Dates: start: 200805, end: 201104
  8. ATENOLOL [Concomitant]
     Indication: HYPERTENSION
     Dosage: UNK
     Dates: start: 2003, end: 2009

REACTIONS (30)
  - Femur fracture [Not Recovered/Not Resolved]
  - Open reduction of fracture [Not Recovered/Not Resolved]
  - Hip arthroplasty [Unknown]
  - Ankle fracture [Unknown]
  - Closed fracture manipulation [Unknown]
  - Myocardial infarction [Unknown]
  - Pneumonia [Unknown]
  - Impaired healing [Unknown]
  - Open reduction of fracture [Unknown]
  - Impaired healing [Unknown]
  - Packed red blood cell transfusion [Unknown]
  - Myeloproliferative disorder [Unknown]
  - Transfusion [Unknown]
  - Radius fracture [Unknown]
  - Patella fracture [Unknown]
  - Lung infiltration [Unknown]
  - Haemoglobin decreased [Recovering/Resolving]
  - Haematocrit decreased [Recovering/Resolving]
  - Fall [Unknown]
  - Fall [Unknown]
  - Sleep disorder [Unknown]
  - Eye disorder [Unknown]
  - Anaemia [Not Recovered/Not Resolved]
  - Device related infection [Unknown]
  - Medical device removal [Unknown]
  - Muscle spasms [Unknown]
  - Nausea [Unknown]
  - Drug hypersensitivity [Unknown]
  - Drug hypersensitivity [Unknown]
  - Drug hypersensitivity [Unknown]
